FAERS Safety Report 8347159-1 (Version None)
Quarter: 2012Q2

REPORT INFORMATION
  Report Type: 
  Country: None (occurrence: None)
  Receive Date: 20120507
  Receipt Date: 20120427
  Transmission Date: 20120825
  Serious: Yes (Other)
  Sender: FDA-Public Use
  Company Number: ACO_29260_2012

PATIENT
  Age: 44 Year
  Sex: Female

DRUGS (2)
  1. COPAXONE (GILATIRAMER ACETATE) [Concomitant]
  2. AMPYRA [Suspect]
     Indication: PRODUCT USED FOR UNKNOWN INDICATION
     Dosage: 10 MG, BID
     Dates: start: 20110701

REACTIONS (2)
  - FLUSHING [None]
  - BACK DISORDER [None]
